FAERS Safety Report 9553442 (Version 1)
Quarter: 2013Q3

REPORT INFORMATION
  Report Type: Spontaneous
  Country: CH (occurrence: CH)
  Receive Date: 20130925
  Receipt Date: 20130925
  Transmission Date: 20140515
  Serious: Yes (Hospitalization, Other)
  Sender: FDA-Public Use
  Company Number: CH-PFIZER INC-2013273778

PATIENT
  Age: 64 Year
  Sex: Female

DRUGS (11)
  1. PANTOZOL [Suspect]
     Indication: PROPHYLAXIS
     Dosage: 40 MG, DAILY
     Route: 048
     Dates: end: 20130823
  2. CIPROXIN [Suspect]
     Indication: RENAL ABSCESS
     Dosage: 1.5 DF, 2X/DAY
     Route: 048
     Dates: start: 20130813, end: 20130824
  3. AROMASIN [Concomitant]
     Dosage: UNK
     Dates: end: 20130823
  4. DIFLUCAN [Concomitant]
     Dosage: UNK
     Dates: end: 20130817
  5. IMAZOL [Concomitant]
     Dosage: UNK
  6. KCL-RETARD [Concomitant]
     Dosage: UNK
     Dates: end: 20130823
  7. TOPIRAMATE [Concomitant]
     Dosage: UNK
  8. TORASEMID [Concomitant]
     Dosage: UNK
     Dates: end: 20130823
  9. XANAX [Concomitant]
     Dosage: UNK
  10. XARELTO [Concomitant]
     Dosage: UNK
     Dates: end: 20130823
  11. PERENTEROL [Concomitant]
     Dosage: UNK

REACTIONS (2)
  - Renal failure chronic [Recovered/Resolved]
  - Tubulointerstitial nephritis [Recovered/Resolved]
